FAERS Safety Report 10757514 (Version 1)
Quarter: 2015Q1

REPORT INFORMATION
  Report Type: Spontaneous
  Country: US (occurrence: None)
  Receive Date: 20150130
  Receipt Date: 20150130
  Transmission Date: 20150721
  Serious: Yes (Other)
  Sender: FDA-Public Use
  Company Number: 2015SIG00003

PATIENT

DRUGS (2)
  1. DISULFIRAM. [Suspect]
     Active Substance: DISULFIRAM
     Route: 048
  2. UNSPECIFIED UNTIRETROVIRAL DRUGS [Concomitant]

REACTIONS (1)
  - Blood HIV RNA increased [None]
